FAERS Safety Report 11450554 (Version 1)
Quarter: 2015Q3

REPORT INFORMATION
  Report Type: Spontaneous
  Country: US (occurrence: US)
  Receive Date: 20150903
  Receipt Date: 20150903
  Transmission Date: 20151125
  Serious: No
  Sender: FDA-Public Use
  Company Number: US-ROCHE-1064453

PATIENT
  Age: 48 Year
  Sex: Male
  Weight: 72.19 kg

DRUGS (4)
  1. RIBASPHERE RIBAPAK [Suspect]
     Active Substance: RIBAVIRIN
     Dosage: 3 TABLETS AM AND 2 TABLETS PM
     Route: 048
     Dates: start: 20120106
  2. RIBASPHERE RIBAPAK [Suspect]
     Active Substance: RIBAVIRIN
     Indication: CHRONIC HEPATITIS C
     Route: 048
  3. TELAPREVIR [Suspect]
     Active Substance: TELAPREVIR
     Indication: CHRONIC HEPATITIS C
     Route: 065
  4. PEGASYS [Suspect]
     Active Substance: PEGINTERFERON ALFA-2A
     Indication: CHRONIC HEPATITIS C
     Route: 058
     Dates: start: 20120106

REACTIONS (3)
  - Injection site haemorrhage [Recovered/Resolved]
  - Pyrexia [Unknown]
  - Drug administration error [Unknown]

NARRATIVE: CASE EVENT DATE: 20120127
